FAERS Safety Report 11755540 (Version 1)
Quarter: 2015Q4

REPORT INFORMATION
  Report Type: Spontaneous
  Country: US (occurrence: US)
  Receive Date: 20151119
  Receipt Date: 20151119
  Transmission Date: 20160304
  Serious: Yes (Death)
  Sender: FDA-Public Use
  Company Number: US-PFIZER INC-2015339464

PATIENT
  Age: 60 Year
  Sex: Female
  Weight: 32 kg

DRUGS (37)
  1. VFEND [Suspect]
     Active Substance: VORICONAZOLE
     Indication: IMMUNOSUPPRESSANT DRUG THERAPY
     Dosage: 200 MG, 2X/DAY
     Route: 048
     Dates: start: 20111027
  2. VFEND [Suspect]
     Active Substance: VORICONAZOLE
     Indication: ASPERGILLUS INFECTION
     Dosage: 200 MG, 2X/DAY
     Route: 048
     Dates: start: 20120220, end: 20150727
  3. BISACODYL. [Concomitant]
     Active Substance: BISACODYL
     Indication: CONSTIPATION
     Dosage: 10 MG, UNK (ONCE DAILY AS NEEDED)
     Route: 048
  4. REGLAN [Concomitant]
     Active Substance: METOCLOPRAMIDE HYDROCHLORIDE
     Dosage: 5 MG, 2X/DAY
     Route: 048
  5. ITRACONAZOLE. [Concomitant]
     Active Substance: ITRACONAZOLE
     Indication: PROPHYLAXIS
     Dosage: 100 MG, 2X/DAY (EVERY 12 HRS)
     Route: 048
  6. IMMUNE GLOBULIN [Concomitant]
     Active Substance: HUMAN IMMUNOGLOBULIN G
     Indication: IMMUNE SYSTEM DISORDER
     Dosage: UNK UNK, MONTHLY
     Dates: start: 20150922
  7. METOPROLOL [Concomitant]
     Active Substance: METOPROLOL
     Dosage: 0.5 MG, 2X/DAY
     Route: 048
  8. ZOLPIDEM [Concomitant]
     Active Substance: ZOLPIDEM\ZOLPIDEM TARTRATE
     Indication: SLEEP DISORDER
     Dosage: 10 MG, 2X/DAY (2 TAB BY MOUTH AS NEEDED )
     Route: 048
  9. PREDNISONE. [Concomitant]
     Active Substance: PREDNISONE
     Dosage: 10 MG, 1X/DAY
     Route: 048
  10. ONDANSETRON [Concomitant]
     Active Substance: ONDANSETRON
     Indication: NAUSEA
     Dosage: 4 MG, UNK (4MG= 1 TAB EVERY 6 HOURS AS NEEDED)
     Route: 048
  11. DOCUSATE SODIUM. [Concomitant]
     Active Substance: DOCUSATE SODIUM
     Dosage: 100 MG, 2X/DAY
     Route: 048
  12. BREO ELLIPTA [Concomitant]
     Active Substance: FLUTICASONE FUROATE\VILANTEROL TRIFENATATE
     Dosage: UNK, 1X/DAY (FLUTICASONE FUROATE-100MCG, VILANTEROL TRIFENATATE-25MCG), 1 PUFF INHALER)
  13. SULFAMETHOXAZOLE-TRIMETHOPRIM (SMZ) [Concomitant]
     Active Substance: SULFAMETHOXAZOLE\TRIMETHOPRIM
     Dosage: UNK, 2X/DAY(SULFAMETHOXATE-800,TRIMETHOPRIM-160(ON MONDAY, WEDNESDAY, FRIDAY) )
     Route: 048
  14. ITRACONAZOLE. [Concomitant]
     Active Substance: ITRACONAZOLE
     Dosage: 100 MG, UNK(EVERY 12 HOURS)
     Route: 048
  15. ONDANSETRON [Concomitant]
     Active Substance: ONDANSETRON
     Indication: VOMITING
  16. FENTANYL. [Concomitant]
     Active Substance: FENTANYL
     Dosage: 25 ?G, UNK (25 MCG/HR=1 PATCH TOPICAL PATCH PATCH EVERY 72 HOURS)
     Route: 062
  17. TACROLIMUS. [Concomitant]
     Active Substance: TACROLIMUS
     Dosage: 1.5 MG, 1X/DAY(EVERY MORNING)
     Route: 048
  18. TOPAMAX [Concomitant]
     Active Substance: TOPIRAMATE
     Dosage: 25 MG, 2X/DAY
     Route: 048
  19. TACROLIMUS. [Concomitant]
     Active Substance: TACROLIMUS
     Dosage: 2 MG, 2X/DAY
  20. MYCOPHENOLATE MOFETIL. [Concomitant]
     Active Substance: MYCOPHENOLATE MOFETIL
     Indication: IMMUNOSUPPRESSANT DRUG THERAPY
     Dosage: 250 MG CAPSULES, TAKING 2 CAPSULES, TWICE A DAY
     Route: 048
  21. VALCYTE [Concomitant]
     Active Substance: VALGANCICLOVIR HYDROCHLORIDE
     Indication: PROPHYLAXIS
     Dosage: 450 MG, 1X/DAY
     Route: 048
  22. FENOFIBRATE. [Concomitant]
     Active Substance: FENOFIBRATE
     Dosage: 145 MG, 1X/DAY
     Route: 048
  23. PROGRAF [Concomitant]
     Active Substance: TACROLIMUS\TACROLIMUS ANHYDROUS
     Dosage: 2 MG, 1X/DAY (EVERY EVENING)
     Route: 048
  24. VITAMIN D [Concomitant]
     Active Substance: CHOLECALCIFEROL
     Dosage: UNK, 2X/DAY (CALCIUM-VITD (500MG/200 INT UNIT)
     Route: 048
  25. TACROLIMUS. [Concomitant]
     Active Substance: TACROLIMUS
     Dosage: 1.5 MG, 2X/DAY
  26. AZITHROMYCIN [Concomitant]
     Active Substance: AZITHROMYCIN ANHYDROUS
     Dosage: 500 MG, UNK(EVERY MONDAY, WEDNESDAY AND FRIDAY)
     Route: 048
  27. OMEPRAZOLE. [Concomitant]
     Active Substance: OMEPRAZOLE
     Dosage: 20 MG, 2X/DAY
     Route: 048
  28. ZOLEDRONIC ACID [Concomitant]
     Active Substance: ZOLEDRONIC ACID
     Dosage: 5 MG, UNK (INFUSE 5MG IV OVER AT LEAST 15 MINUTES AS DIRECTED)
     Route: 042
  29. POLYETHYLENE GLYCOL 3350. [Concomitant]
     Active Substance: POLYETHYLENE GLYCOL 3350
     Dosage: UNK(PWD BEFORE MEALS AND AT BEDTIME)
     Route: 048
  30. TACROLIMUS. [Concomitant]
     Active Substance: TACROLIMUS
     Indication: IMMUNOSUPPRESSANT DRUG THERAPY
     Dosage: 1 MG, UNK
  31. TRAMADOL. [Concomitant]
     Active Substance: TRAMADOL
     Indication: PAIN
     Dosage: 50 MG, AS NEEDED (EVERY 6 HOURS)
     Route: 048
  32. NYSTATIN. [Concomitant]
     Active Substance: NYSTATIN
     Dosage: 5 ML, 4X/DAY (500,000 IU)
     Route: 048
  33. ALBUTEROL NEB [Concomitant]
     Dosage: 3 ML, UNK (EVERY 4 HOURS WHILE AWAKE)
  34. FLUTICASONE W/SALMETEROL [Concomitant]
     Active Substance: FLUTICASONE PROPIONATE\SALMETEROL XINAFOATE
     Dosage: UNK, 2X/DAY (FLUTICASONE-250 MCG, SALMETEROL-50 MCG (1 PUFF INHALED INHALER))
  35. MAG-OX [Concomitant]
     Active Substance: MAGNESIUM OXIDE
     Dosage: 400 MG, 2X/DAY
     Route: 048
  36. LIDOCAINE - TOPICAL [Concomitant]
     Dosage: 1 DF, UNK (LEAVE IN PLACE FOR 12 HOURS, THEN REMOVE AND LEAVE OFF FOR 12 HOURS)
  37. FISH OIL [Concomitant]
     Active Substance: FISH OIL
     Dosage: 1000 MG, 2X/DAY
     Route: 048

REACTIONS (1)
  - No adverse event [Unknown]
